FAERS Safety Report 9804530 (Version 3)
Quarter: 2014Q2

REPORT INFORMATION
  Report Type: Spontaneous
  Country: US (occurrence: US)
  Receive Date: 20140108
  Receipt Date: 20140414
  Transmission Date: 20141212
  Serious: Yes (Death, Hospitalization)
  Sender: FDA-Public Use
  Company Number: US-CELGENEUS-163-21880-13106399

PATIENT
  Age: 64 Year
  Sex: Male

DRUGS (41)
  1. REVLIMID [Suspect]
     Indication: PLASMA CELL MYELOMA
     Dosage: 25 MILLIGRAM
     Route: 048
     Dates: start: 20130524, end: 20130526
  2. VELCADE [Suspect]
     Indication: PLASMA CELL MYELOMA
     Route: 065
  3. VELCADE [Suspect]
     Route: 065
     Dates: start: 20130520
  4. AUGMENTIN [Concomitant]
     Indication: PRODUCT USED FOR UNKNOWN INDICATION
     Dosage: 1750 MILLIGRAM
     Route: 065
     Dates: start: 20130523, end: 20130526
  5. RED BLOOD CELLS [Concomitant]
     Indication: PRODUCT USED FOR UNKNOWN INDICATION
     Route: 041
  6. PLATELETS [Concomitant]
     Indication: PRODUCT USED FOR UNKNOWN INDICATION
     Route: 041
  7. PLATELETS [Concomitant]
     Dosage: 1 UNITS
     Route: 041
     Dates: start: 20130526, end: 20130526
  8. SODIUM BICARBONATE [Concomitant]
     Indication: PRODUCT USED FOR UNKNOWN INDICATION
     Route: 041
  9. OXYGEN [Concomitant]
     Indication: PRODUCT USED FOR UNKNOWN INDICATION
     Route: 055
  10. OXYGEN [Concomitant]
     Route: 055
     Dates: start: 20130526
  11. DEXAMETHASONE [Concomitant]
     Indication: PLASMA CELL MYELOMA
     Route: 048
  12. DEXAMETHASONE [Concomitant]
     Route: 065
     Dates: start: 20130520
  13. DEXAMETHASONE [Concomitant]
     Dosage: 12 MILLIGRAM
     Route: 065
  14. DEXAMETHASONE [Concomitant]
     Dosage: 40 MILLIGRAM
     Route: 041
  15. LIDOCAINE [Concomitant]
     Indication: PRODUCT USED FOR UNKNOWN INDICATION
     Route: 065
  16. GLUCOSE [Concomitant]
     Indication: PRODUCT USED FOR UNKNOWN INDICATION
     Dates: end: 20130526
  17. ONDANSETRON [Concomitant]
     Indication: PRODUCT USED FOR UNKNOWN INDICATION
     Dates: end: 20130526
  18. SODIUM CHLORIDE [Concomitant]
     Indication: PRODUCT USED FOR UNKNOWN INDICATION
     Dates: end: 20130526
  19. SODIUM CHLORIDE [Concomitant]
     Route: 041
     Dates: end: 20130526
  20. SODIUM CHLORIDE [Concomitant]
     Route: 041
     Dates: end: 20130526
  21. MORPHINE [Concomitant]
     Indication: PRODUCT USED FOR UNKNOWN INDICATION
     Dates: end: 20130526
  22. MORPHINE [Concomitant]
     Dosage: 240 MILLIGRAM
     Route: 048
  23. METOPROLOL [Concomitant]
     Indication: PRODUCT USED FOR UNKNOWN INDICATION
     Route: 048
     Dates: end: 20130526
  24. METOPROLOL [Concomitant]
     Route: 041
     Dates: end: 20130526
  25. METOPROLOL [Concomitant]
     Dosage: 1 - 1/2 TABLET
     Route: 048
  26. DEXTROSE [Concomitant]
     Indication: PRODUCT USED FOR UNKNOWN INDICATION
     Dates: end: 20130526
  27. DEXTROSE [Concomitant]
     Route: 048
     Dates: start: 20130526
  28. HYDROCORTISONE [Concomitant]
     Indication: PRODUCT USED FOR UNKNOWN INDICATION
     Dates: end: 20130526
  29. HYDROMORPHONE [Concomitant]
     Indication: BACK PAIN
     Dates: end: 20130526
  30. HYDROMORPHONE [Concomitant]
     Dosage: 2 - 1/2 TABLETS
     Route: 048
  31. ZOMETA [Concomitant]
     Indication: PLASMA CELL MYELOMA
     Route: 065
     Dates: start: 20130520
  32. ASPIRIN [Concomitant]
     Indication: PRODUCT USED FOR UNKNOWN INDICATION
     Dosage: 81 MILLIGRAM
     Route: 065
  33. LOMOTIL [Concomitant]
     Indication: PRODUCT USED FOR UNKNOWN INDICATION
     Route: 065
  34. BACLOFEN [Concomitant]
     Indication: PRODUCT USED FOR UNKNOWN INDICATION
     Dosage: 30 MILLIGRAM
     Route: 065
  35. SENOKOT S [Concomitant]
     Indication: CONSTIPATION
     Dosage: 2 TABLET
     Route: 048
  36. FLUCONAZOLE [Concomitant]
     Indication: CONSTIPATION
     Dosage: 200 MILLIGRAM
     Route: 065
  37. FLUDROCORTISONE [Concomitant]
     Indication: PRODUCT USED FOR UNKNOWN INDICATION
     Dosage: .8 MILLIGRAM
     Route: 065
  38. LANTUS [Concomitant]
     Indication: PRODUCT USED FOR UNKNOWN INDICATION
     Dosage: 20 UNITS
     Route: 065
  39. REGULAR INSULIN [Concomitant]
     Indication: PRODUCT USED FOR UNKNOWN INDICATION
     Route: 065
  40. LISINOPRIL [Concomitant]
     Indication: PRODUCT USED FOR UNKNOWN INDICATION
     Dosage: 20 MILLIGRAM
     Route: 048
  41. POTASSIUM CHLORIDE [Concomitant]
     Indication: PRODUCT USED FOR UNKNOWN INDICATION
     Dosage: 20 MILLIEQUIVALENTS
     Route: 065

REACTIONS (7)
  - Multi-organ failure [Fatal]
  - Septic shock [Fatal]
  - Pneumonia [Fatal]
  - Atrial fibrillation [Fatal]
  - Plasma cell myeloma [Fatal]
  - Pancytopenia [Fatal]
  - Mucosal inflammation [Fatal]
